FAERS Safety Report 13826857 (Version 1)
Quarter: 2017Q3

REPORT INFORMATION
  Report Type: Spontaneous
  Country: US (occurrence: US)
  Receive Date: 20170802
  Receipt Date: 20170802
  Transmission Date: 20171127
  Serious: No
  Sender: FDA-Public Use
  Company Number: US-ROCHE-649944

PATIENT
  Age: 66 Year
  Sex: Female

DRUGS (2)
  1. ZOCOR [Concomitant]
     Active Substance: SIMVASTATIN
     Route: 065
  2. BONIVA [Suspect]
     Active Substance: IBANDRONATE SODIUM
     Indication: OSTEOPOROSIS
     Route: 048

REACTIONS (3)
  - Musculoskeletal stiffness [Not Recovered/Not Resolved]
  - Abdominal discomfort [Unknown]
  - Joint stiffness [Not Recovered/Not Resolved]

NARRATIVE: CASE EVENT DATE: 200908
